FAERS Safety Report 6491184-2 (Version None)
Quarter: 2009Q4

REPORT INFORMATION
  Report Type: 
  Country: None (occurrence: None)
  Receive Date: 20091125
  Receipt Date: 20090709
  Transmission Date: 20100525
  Serious: Yes (Hospitalization, Other)
  Sender: FDA-Public Use
  Company Number: 2009BH009417

PATIENT
  Sex: Male

DRUGS (2)
  1. DIANEAL [Suspect]
     Indication: PERITONEAL DIALYSIS
     Dosage: 11 L; EVERY DAY; IP
     Route: 033
     Dates: start: 20080101, end: 20090401
  2. HEPARIN SODIUM [Concomitant]

REACTIONS (1)
  - PERITONITIS BACTERIAL [None]
